FAERS Safety Report 7340234-X (Version None)
Quarter: 2011Q1

REPORT INFORMATION
  Report Type: 
  Country: None (occurrence: None)
  Receive Date: 20110309
  Receipt Date: 20110210
  Transmission Date: 20110831
  Serious: No
  Sender: FDA-Public Use
  Company Number: US-B.I. PHARMACEUTICALS,INC./RIDGEFIELD-2011-BP-05571BP

PATIENT
  Age: 76 Year
  Sex: Male

DRUGS (9)
  1. SINGULAIR [Concomitant]
     Indication: ASTHMA
  2. AMBIEN [Concomitant]
     Indication: SLEEP DISORDER
  3. LISINOPRIL [Concomitant]
     Indication: HYPERTENSION
  4. PRADAXA [Suspect]
     Indication: ATRIAL FIBRILLATION
     Dosage: 300 MG
     Route: 048
     Dates: start: 20110204
  5. SINGULAIR [Concomitant]
     Indication: EMPHYSEMA
     Dosage: 10 MG
  6. ASPIRIN [Concomitant]
     Indication: ATRIAL FIBRILLATION
  7. TAZTIA [Concomitant]
     Indication: HYPERTENSION
     Dosage: 240 MG
  8. SOTALOL HYDROCHLORIDE [Concomitant]
     Indication: HYPERTENSION
     Dosage: 240 MG
  9. CRESTOR [Concomitant]
     Indication: BLOOD CHOLESTEROL INCREASED

REACTIONS (2)
  - MIGRAINE [None]
  - GASTROOESOPHAGEAL REFLUX DISEASE [None]
